FAERS Safety Report 7555013-8 (Version None)
Quarter: 2011Q2

REPORT INFORMATION
  Report Type: 
  Country: None (occurrence: None)
  Receive Date: 20110610
  Receipt Date: 20110124
  Transmission Date: 20111010
  Serious: Yes (Death)
  Sender: FDA-Public Use
  Company Number: US-2011-10346

PATIENT
  Age: 6 Year
  Sex: Male

DRUGS (4)
  1. METHOTREXATE [Concomitant]
  2. PREDNISOLONE [Concomitant]
  3. BUSULFEX [Suspect]
     Indication: BONE MARROW CONDITIONING REGIMEN
  4. MYCOPHENOLATE MOFETIL [Concomitant]

REACTIONS (1)
  - PSEUDOMONAL SEPSIS [None]
